FAERS Safety Report 7746366-6 (Version None)
Quarter: 2011Q3

REPORT INFORMATION
  Report Type: 
  Country: None (occurrence: None)
  Receive Date: 20110913
  Receipt Date: 20110907
  Transmission Date: 20111222
  Serious: Yes (Hospitalization)
  Sender: FDA-Public Use
  Company Number: FR-ROCHE-801143

PATIENT
  Sex: Male

DRUGS (3)
  1. BEVACIZUMAB [Suspect]
     Dosage: FREQUENCY:/4W
     Route: 065
     Dates: start: 20101122, end: 20110719
  2. PACLITAXEL [Concomitant]
     Dosage: DOSE: 80 MG/M2, FREQUENCY: /W
     Dates: start: 20101122, end: 20110801
  3. PREDNISOLONE [Concomitant]
     Dosage: DOSE: 20 MG/D

REACTIONS (1)
  - PNEUMOTHORAX [None]
